FAERS Safety Report 7635976-2 (Version None)
Quarter: 2011Q3

REPORT INFORMATION
  Report Type: 
  Country: None (occurrence: None)
  Receive Date: 20110726
  Receipt Date: 20110714
  Transmission Date: 20111222
  Serious: Yes (Other)
  Sender: FDA-Public Use
  Company Number: KR-AMGEN-KORSP2011026147

PATIENT
  Age: 67 Year
  Sex: Male

DRUGS (13)
  1. ESPO [Suspect]
     Indication: PRODUCT USED FOR UNKNOWN INDICATION
     Dosage: UNK UNK, UNK
     Route: 058
     Dates: start: 20090205, end: 20110406
  2. GLICLAZIDE [Concomitant]
     Dosage: 30 MG, UNK
  3. FERROUS SULFATE TAB [Concomitant]
  4. VITAMIN B COMPLEX WITH C [Concomitant]
  5. PROPRANOLOL [Concomitant]
     Dosage: 40 MG, UNK
  6. SEVELAMER HYDROCHLORIDE [Concomitant]
     Dosage: 800 MG, UNK
  7. CANDESARTAN CILEXETIL [Concomitant]
     Dosage: 16 MG, UNK
  8. HYDRALAZINE HCL [Concomitant]
     Dosage: 25 MG, UNK
  9. REPAGLINIDE [Concomitant]
     Dosage: 1 MG, UNK
  10. NESPO [Suspect]
     Indication: PRODUCT USED FOR UNKNOWN INDICATION
     Dosage: UNK UNK, UNK
     Route: 058
     Dates: start: 20090307, end: 20091010
  11. CALCIUM POLYSTYRENE SULFONATE [Concomitant]
     Dosage: 5 G, TID
  12. ASPIRIN [Concomitant]
  13. NIFEDIPINE [Concomitant]
     Dosage: 60 MG, UNK

REACTIONS (1)
  - APLASIA PURE RED CELL [None]
